FAERS Safety Report 9740700 (Version 1)
Quarter: 2013Q4

REPORT INFORMATION
  Report Type: Spontaneous
  Country: US (occurrence: US)
  Receive Date: 20131209
  Receipt Date: 20131209
  Transmission Date: 20140711
  Serious: No
  Sender: FDA-Public Use
  Company Number: US-BIOGENIDEC-2013BI099298

PATIENT
  Sex: Female

DRUGS (8)
  1. TECFIDERA [Suspect]
     Indication: MULTIPLE SCLEROSIS
     Route: 048
     Dates: start: 20130802
  2. TECFIDERA [Suspect]
     Indication: MULTIPLE SCLEROSIS
     Route: 048
     Dates: start: 20130802
  3. AMITRIPTYLINE HCL [Concomitant]
  4. DOXYCYCLINE HYCLATE [Concomitant]
  5. IMPERIM [Concomitant]
  6. SYNTHROID [Concomitant]
  7. WELLBUTRIN SR [Concomitant]
  8. ZANAFLEX [Concomitant]

REACTIONS (2)
  - Underdose [Unknown]
  - Nausea [Unknown]
